FAERS Safety Report 13954514 (Version 1)
Quarter: 2017Q3

REPORT INFORMATION
  Report Type: Spontaneous
  Country: US (occurrence: US)
  Receive Date: 20170910
  Receipt Date: 20170910
  Transmission Date: 20171128
  Serious: Yes (Other)
  Sender: FDA-Public Use
  Company Number: None

PATIENT
  Age: 18 Year
  Sex: Female
  Weight: 157.5 kg

DRUGS (1)
  1. NEXPLANON [Suspect]
     Active Substance: ETONOGESTREL
     Indication: CONTRACEPTION
     Dosage: ?          OTHER ROUTE:INTO MY ARM?

REACTIONS (4)
  - Metrorrhagia [None]
  - Suicide attempt [None]
  - Amenorrhoea [None]
  - Depression [None]

NARRATIVE: CASE EVENT DATE: 20150102
